FAERS Safety Report 6120072-6 (Version None)
Quarter: 2009Q1

REPORT INFORMATION
  Report Type: 
  Country: None (occurrence: None)
  Receive Date: 20090316
  Receipt Date: 20090309
  Transmission Date: 20090719
  Serious: Yes (Other)
  Sender: FDA-Public Use
  Company Number: US-AMGEN-QUU337579

PATIENT
  Sex: Female

DRUGS (3)
  1. ENBREL [Suspect]
     Indication: PSORIATIC ARTHROPATHY
     Route: 058
     Dates: start: 20080229
  2. ENBREL [Suspect]
     Indication: PSORIASIS
  3. IMURAN [Concomitant]
     Route: 048

REACTIONS (8)
  - CONVULSION [None]
  - DRY MOUTH [None]
  - FALL [None]
  - JOINT INJURY [None]
  - LIP EXFOLIATION [None]
  - ORAL MUCOSAL EXFOLIATION [None]
  - PSORIASIS [None]
  - PSORIATIC ARTHROPATHY [None]
